FAERS Safety Report 20641399 (Version 1)
Quarter: 2022Q1

REPORT INFORMATION
  Report Type: Spontaneous
  Country: US (occurrence: US)
  Receive Date: 20220328
  Receipt Date: 20220328
  Transmission Date: 20220423
  Serious: Yes (Death, Other)
  Sender: FDA-Public Use
  Company Number: US-BRISTOL-MYERS SQUIBB COMPANY-2022-010252

PATIENT
  Age: 51 Year
  Sex: Male

DRUGS (2)
  1. OPDIVO [Suspect]
     Active Substance: NIVOLUMAB
     Indication: Pancreatic carcinoma
     Dosage: DOSE : 200MG;     FREQ : ^EVERY 2 WEEKS^
     Route: 065
  2. NIVOLUMAB\RELATLIMAB-RMBW [Suspect]
     Active Substance: NIVOLUMAB\RELATLIMAB-RMBW
     Indication: Pancreatic carcinoma
     Dosage: DOSE : 200MG;     FREQ : ^EVERY 2 WEEKS^
     Route: 065

REACTIONS (2)
  - Death [Fatal]
  - Off label use [Unknown]

NARRATIVE: CASE EVENT DATE: 20220228
